FAERS Safety Report 12901538 (Version 1)
Quarter: 2016Q4

REPORT INFORMATION
  Report Type: Spontaneous
  Country: MY (occurrence: MY)
  Receive Date: 20161102
  Receipt Date: 20161102
  Transmission Date: 20170207
  Serious: Yes (Hospitalization)
  Sender: FDA-Public Use
  Company Number: MY-ROCHE-1834207

PATIENT
  Age: 56 Year
  Sex: Male
  Weight: 44 kg

DRUGS (5)
  1. CYCLOPHOSPHAMIDE. [Concomitant]
     Active Substance: CYCLOPHOSPHAMIDE
     Indication: CHEMOTHERAPY
     Route: 042
     Dates: start: 20160405, end: 20160809
  2. PREDNISONE. [Concomitant]
     Active Substance: PREDNISONE
     Indication: CHEMOTHERAPY
     Route: 048
     Dates: start: 20160405, end: 20160809
  3. RITUXIMAB [Suspect]
     Active Substance: RITUXIMAB
     Indication: B-CELL LYMPHOMA
     Dosage: 500MG IV EVERY 3 WEEKS
     Route: 042
     Dates: start: 20160405, end: 20160809
  4. DOXORUBICIN [Concomitant]
     Active Substance: DOXORUBICIN
     Indication: CHEMOTHERAPY
     Route: 042
     Dates: start: 20160405, end: 20160809
  5. VINCRISTINE [Concomitant]
     Active Substance: VINCRISTINE
     Indication: CHEMOTHERAPY
     Route: 042
     Dates: start: 20160405, end: 20160809

REACTIONS (7)
  - Diarrhoea [Recovered/Resolved]
  - Neutropenic sepsis [Recovered/Resolved]
  - Enterovesical fistula [Unknown]
  - Asthenia [Recovered/Resolved]
  - Urosepsis [Unknown]
  - Dysuria [Unknown]
  - Pyrexia [Recovered/Resolved]

NARRATIVE: CASE EVENT DATE: 20160429
